FAERS Safety Report 19503609 (Version 1)
Quarter: 2021Q3

REPORT INFORMATION
  Report Type: Spontaneous
  Country: PL (occurrence: PL)
  Receive Date: 20210707
  Receipt Date: 20210707
  Transmission Date: 20211014
  Serious: Yes (Other)
  Sender: FDA-Public Use
  Company Number: PL-ALXN-A202107641

PATIENT
  Age: 23 Year
  Sex: Female

DRUGS (1)
  1. SOLIRIS [Suspect]
     Active Substance: ECULIZUMAB
     Indication: ATYPICAL HAEMOLYTIC URAEMIC SYNDROME
     Dosage: 900 MG, UNK
     Route: 065
     Dates: start: 20210602, end: 20210623

REACTIONS (3)
  - Thrombotic microangiopathy [Unknown]
  - Bone marrow transplant [Unknown]
  - Condition aggravated [Unknown]
